FAERS Safety Report 6221871-2 (Version None)
Quarter: 2009Q2

REPORT INFORMATION
  Report Type: 
  Country: None (occurrence: None)
  Receive Date: 20090609
  Receipt Date: 20090609
  Transmission Date: 20091009
  Serious: Yes (Other)
  Sender: FDA-Public Use
  Company Number: None

PATIENT
  Age: 67 Year
  Sex: Female

DRUGS (1)
  1. LEXISCAN [Suspect]
     Indication: CHEST PAIN
     Dosage: 0.4MG IV
     Route: 042
     Dates: start: 20090520

REACTIONS (2)
  - CHEST DISCOMFORT [None]
  - TREMOR [None]
